FAERS Safety Report 26157927 (Version 1)
Quarter: 2025Q4

REPORT INFORMATION
  Report Type: Spontaneous
  Country: US (occurrence: None)
  Receive Date: 20251212
  Receipt Date: 20251212
  Transmission Date: 20260117
  Serious: Yes (Hospitalization)
  Sender: FDA-CTU
  Company Number: None

PATIENT
  Sex: Female

DRUGS (5)
  1. WINREVAIR [Suspect]
     Active Substance: SOTATERCEPT-CSRK
     Indication: Pulmonary arterial hypertension
     Dosage: 1.3 ML EVERY 3 WEEKS SUBCUTANEOUS
     Route: 058
     Dates: start: 20240930
  2. REMODULIN [Suspect]
     Active Substance: TREPROSTINIL
  3. LIDOCAINE/PRILOCAINE CRM [Concomitant]
  4. STERILE DILUENT FOR REMODULIN [Concomitant]
     Active Substance: WATER
  5. TRIAMCINOLONE ACET CRM [Concomitant]

REACTIONS (1)
  - Hospitalisation [None]
